FAERS Safety Report 18311566 (Version 1)
Quarter: 2020Q3

REPORT INFORMATION
  Report Type: Spontaneous
  Country: US (occurrence: US)
  Receive Date: 20200924
  Receipt Date: 20200924
  Transmission Date: 20201103
  Serious: Yes (Hospitalization)
  Sender: FDA-Public Use
  Company Number: None

PATIENT
  Age: 61 Year
  Sex: Female

DRUGS (1)
  1. EPCLUSA [Suspect]
     Active Substance: SOFOSBUVIR\VELPATASVIR
     Indication: HEPATITIS C
     Dosage: OTHER DOSE:400?100 MG;?
     Route: 048
     Dates: start: 20200910

REACTIONS (6)
  - Pulmonary mass [None]
  - Parosmia [None]
  - Confusional state [None]
  - Nausea [None]
  - Hypersomnia [None]
  - Pneumonia [None]

NARRATIVE: CASE EVENT DATE: 20200912
